FAERS Safety Report 7021234-6 (Version None)
Quarter: 2010Q3

REPORT INFORMATION
  Report Type: 
  Country: None (occurrence: None)
  Receive Date: 20100929
  Receipt Date: 20100714
  Transmission Date: 20110219
  Serious: No
  Sender: FDA-Public Use
  Company Number: US-PFIZER INC-2010087870

PATIENT
  Sex: Female

DRUGS (4)
  1. ADRIAMYCIN PFS [Suspect]
     Indication: BREAST CANCER
     Dosage: UNK
     Dates: start: 20080301
  2. TAXOTERE [Suspect]
     Indication: BREAST CANCER
     Dosage: UNK
     Dates: start: 20080301, end: 20091001
  3. CYCLOPHOSPHAMIDE [Suspect]
     Indication: BREAST CANCER
     Dosage: UNK
     Dates: start: 20080301, end: 20091001
  4. TRASTUZUMAB [Suspect]
     Indication: BREAST CANCER
     Dosage: UNK
     Dates: end: 20091001

REACTIONS (1)
  - ALOPECIA [None]
